FAERS Safety Report 14319602 (Version 1)
Quarter: 2017Q4

REPORT INFORMATION
  Report Type: Spontaneous
  Country: US (occurrence: JP)
  Receive Date: 20171222
  Receipt Date: 20171222
  Transmission Date: 20180321
  Serious: Yes (Other)
  Sender: FDA-Public Use
  Company Number: US-SUNOVION-2017SUN005412

PATIENT

DRUGS (3)
  1. CARDENALIN [Concomitant]
     Active Substance: DOXAZOSIN MESYLATE
  2. ARTIST [Concomitant]
     Active Substance: CARVEDILOL
  3. INDACATEROL [Suspect]
     Active Substance: INDACATEROL
     Indication: PRODUCT USED FOR UNKNOWN INDICATION
     Dosage: UNK
     Route: 055

REACTIONS (1)
  - Syncope [Recovered/Resolved]
